FAERS Safety Report 24693428 (Version 1)
Quarter: 2024Q4

REPORT INFORMATION
  Report Type: Spontaneous
  Country: US (occurrence: US)
  Receive Date: 20241203
  Receipt Date: 20241203
  Transmission Date: 20250114
  Serious: Yes (Death, Other)
  Sender: AMNEAL
  Company Number: US-AMNEAL PHARMACEUTICALS-2024-AMRX-04374

PATIENT
  Age: 26 Year
  Sex: Female
  Weight: 36.009 kg

DRUGS (4)
  1. VIGABATRIN [Suspect]
     Active Substance: VIGABATRIN
     Indication: Partial seizures
     Dosage: DISSOLVE 2 PACKETS IN 20 ML OF WATER AND GIVE/TAKE 20 ML (1000 MG} VIA GASTRIC TUBE TWICE A DAY.
     Route: 048
  2. PHENOBARBITAL [Concomitant]
     Active Substance: PHENOBARBITAL
     Indication: Product used for unknown indication
     Dosage: UNK
     Route: 065
  3. KEPPRA [Concomitant]
     Active Substance: LEVETIRACETAM
     Indication: Product used for unknown indication
     Dosage: UNK
     Route: 065
  4. TOPAMAX [Concomitant]
     Active Substance: TOPIRAMATE
     Indication: Product used for unknown indication
     Dosage: UNK
     Route: 065

REACTIONS (1)
  - Death [Fatal]

NARRATIVE: CASE EVENT DATE: 20241123
